FAERS Safety Report 8481957-9 (Version None)
Quarter: 2012Q3

REPORT INFORMATION
  Report Type: 
  Country: None (occurrence: None)
  Receive Date: 20120702
  Receipt Date: 20120627
  Transmission Date: 20120928
  Serious: Yes (Other)
  Sender: FDA-Public Use
  Company Number: JP-PFIZER INC-2012150234

PATIENT
  Age: 23 Year
  Sex: Female

DRUGS (3)
  1. LOXONIN [Concomitant]
     Dosage: 2 TAPES/DAY
     Route: 062
     Dates: start: 20120419
  2. CELEBREX [Suspect]
     Dosage: 200 MG, 1X/DAY
     Route: 048
     Dates: start: 20120614, end: 20120619
  3. MYONAL [Concomitant]
     Dosage: 2 TABLETS/DAY
     Route: 048
     Dates: start: 20120614, end: 20120619

REACTIONS (3)
  - WEIGHT INCREASED [None]
  - URINARY RETENTION [None]
  - FACE OEDEMA [None]
